FAERS Safety Report 20885704 (Version 1)
Quarter: 2022Q2

REPORT INFORMATION
  Report Type: Spontaneous
  Country: PL (occurrence: PL)
  Receive Date: 20220527
  Receipt Date: 20220527
  Transmission Date: 20220721
  Serious: Yes (Hospitalization, Other)
  Sender: FDA-Public Use
  Company Number: PL-INSUD PHARMA-2205PL01956

PATIENT

DRUGS (2)
  1. TESTOSTERONE [Suspect]
     Active Substance: TESTOSTERONE
     Indication: Muscle building therapy
     Dosage: SEVERAL MONTHS, INCONSISTENT AND VARIABLE
     Route: 065
  2. STANOZOLOL [Suspect]
     Active Substance: STANOZOLOL
     Indication: Muscle building therapy
     Dosage: SEVERAL MONTHS, INCONSISTENT AND VARIABLE
     Route: 065

REACTIONS (14)
  - Renal infarct [Recovered/Resolved]
  - Renal artery thrombosis [Recovered/Resolved]
  - Acute kidney injury [Recovered/Resolved]
  - Flank pain [Recovered/Resolved]
  - Thrombocytosis [Recovered/Resolved]
  - Proteinuria [Recovered/Resolved]
  - Kidney rupture [Recovered/Resolved]
  - Iatrogenic injury [Recovered/Resolved]
  - Arterial injury [Recovered/Resolved]
  - Retroperitoneal haematoma [Recovered/Resolved]
  - Renal necrosis [Recovered/Resolved]
  - Drug abuse [Unknown]
  - Left ventricular hypertrophy [Unknown]
  - Testicular atrophy [Unknown]
